FAERS Safety Report 10216414 (Version 2)
Quarter: 2014Q2

REPORT INFORMATION
  Report Type: Spontaneous
  Country: US (occurrence: US)
  Receive Date: 20140604
  Receipt Date: 20140618
  Transmission Date: 20141212
  Serious: Yes (Other)
  Sender: FDA-Public Use
  Company Number: US-JNJFOC-20140517580

PATIENT
  Age: 53 Year
  Sex: Female
  Weight: 80.74 kg

DRUGS (11)
  1. XARELTO [Suspect]
     Indication: DEEP VEIN THROMBOSIS
     Route: 048
     Dates: start: 20140227, end: 20140304
  2. XARELTO [Suspect]
     Indication: PULMONARY EMBOLISM
     Route: 048
     Dates: start: 20140227, end: 20140304
  3. SEASONIQUE [Suspect]
     Indication: PRODUCT USED FOR UNKNOWN INDICATION
     Route: 065
  4. LAMOTRIGINE [Concomitant]
     Route: 065
  5. FAMOTIDINE [Concomitant]
     Route: 065
  6. BUPROPION [Concomitant]
     Route: 065
  7. QUETIAPINE [Concomitant]
     Route: 065
  8. CLONAZEPAM [Concomitant]
     Route: 065
  9. VITAMIN D [Concomitant]
     Route: 065
  10. VITAMIN C [Concomitant]
     Route: 065
  11. CYCLOBENZAPRINE [Concomitant]
     Dosage: AS NECESSARY
     Route: 065

REACTIONS (4)
  - Menorrhagia [Unknown]
  - Hypotension [Unknown]
  - Haematocrit decreased [Unknown]
  - Haemoglobin decreased [Unknown]
